FAERS Safety Report 6558210-3 (Version None)
Quarter: 2010Q1

REPORT INFORMATION
  Report Type: 
  Country: None (occurrence: None)
  Receive Date: 20100127
  Receipt Date: 20100127
  Transmission Date: 20100710
  Serious: Yes (Hospitalization)
  Sender: FDA-Public Use
  Company Number: None

PATIENT
  Age: 69 Year
  Sex: Female
  Weight: 94.3 kg

DRUGS (5)
  1. BC POWDERS [Suspect]
     Indication: PAIN
     Dosage: ??PO, RECENT INCREASE
     Route: 048
  2. ALLOPURINOL [Concomitant]
  3. LYRICA [Concomitant]
  4. COLCHICINE [Concomitant]
  5. HYDROCHLOROTHIAZIDE [Concomitant]

REACTIONS (2)
  - CHEST PAIN [None]
  - RENAL FAILURE ACUTE [None]
